FAERS Safety Report 9978583 (Version 1)
Quarter: 2014Q1

REPORT INFORMATION
  Report Type: Spontaneous
  Country: US (occurrence: US)
  Receive Date: 20140306
  Receipt Date: 20140306
  Transmission Date: 20141002
  Serious: No
  Sender: FDA-Public Use
  Company Number: US-ABBVIE-13P-163-1171784-00

PATIENT
  Age: 20 Year
  Sex: Female

DRUGS (7)
  1. HUMIRA [Suspect]
     Indication: COLITIS ULCERATIVE
     Dosage: LOADING DOSE
     Dates: start: 201202, end: 201202
  2. HUMIRA [Suspect]
     Dosage: SECOND DOSE
     Dates: start: 2012, end: 2012
  3. HUMIRA [Suspect]
     Dates: start: 2012
  4. APRISO [Concomitant]
     Indication: COLITIS ULCERATIVE
  5. EFFEXOR [Concomitant]
     Indication: ANXIETY
  6. PHENTERMINE [Concomitant]
     Indication: INCREASED APPETITE
  7. APRI [Concomitant]
     Indication: ORAL CONTRACEPTION

REACTIONS (1)
  - Urinary tract infection [Recovering/Resolving]
